FAERS Safety Report 7206724-5 (Version None)
Quarter: 2010Q4

REPORT INFORMATION
  Report Type: 
  Country: None (occurrence: None)
  Receive Date: 20101217
  Receipt Date: 20101208
  Transmission Date: 20110411
  Serious: Yes (Hospitalization, Other)
  Sender: FDA-Public Use
  Company Number: 023380

PATIENT
  Age: 24 Month
  Sex: Male
  Weight: 20.8 kg

DRUGS (2)
  1. KEPPRA [Suspect]
     Indication: CONVULSION
     Dosage: ORAL
     Route: 048
     Dates: start: 20101124, end: 20101124
  2. CARBAMAZEPINE [Concomitant]

REACTIONS (4)
  - AGITATION [None]
  - CRYING [None]
  - HALLUCINATION [None]
  - SCREAMING [None]
